FAERS Safety Report 25190334 (Version 2)
Quarter: 2025Q2

REPORT INFORMATION
  Report Type: Spontaneous
  Country: US (occurrence: US)
  Receive Date: 20250411
  Receipt Date: 20250505
  Transmission Date: 20250716
  Serious: No
  Sender: ARGENX BVBA
  Company Number: US-ARGENX-2025-ARGX-US004276

PATIENT

DRUGS (2)
  1. VYVGART HYTRULO [Suspect]
     Active Substance: EFGARTIGIMOD ALFA\HYALURONIDASE-QVFC
     Indication: Myasthenia gravis
     Dosage: UNK, 1/WEEK FOR 4 WEEKS
     Route: 058
     Dates: start: 20240101
  2. TRESIBA [Concomitant]
     Active Substance: INSULIN DEGLUDEC
     Indication: Type 2 diabetes mellitus
     Route: 065
     Dates: start: 2010

REACTIONS (1)
  - No adverse event [Unknown]
